FAERS Safety Report 7334798-X (Version None)
Quarter: 2011Q1

REPORT INFORMATION
  Report Type: 
  Country: None (occurrence: None)
  Receive Date: 20110307
  Receipt Date: 20110225
  Transmission Date: 20110831
  Serious: Yes (Hospitalization)
  Sender: FDA-Public Use
  Company Number: MX-SANOFI-AVENTIS-2011SA012084

PATIENT
  Age: 71 Year
  Sex: Female

DRUGS (4)
  1. GLIMEPIRIDE [Suspect]
     Route: 048
     Dates: start: 20101118
  2. GLIMEPIRIDE [Suspect]
     Indication: TYPE 2 DIABETES MELLITUS
     Route: 048
     Dates: start: 20090101, end: 20101110
  3. CONCOR [Concomitant]
     Route: 048
     Dates: start: 20050101
  4. HYZAAR [Concomitant]
     Route: 048
     Dates: start: 20050101

REACTIONS (1)
  - SPINAL OPERATION [None]
